FAERS Safety Report 6213447-8 (Version None)
Quarter: 2009Q2

REPORT INFORMATION
  Report Type: 
  Country: None (occurrence: None)
  Receive Date: 20090603
  Receipt Date: 20090501
  Transmission Date: 20091009
  Serious: Yes (Other)
  Sender: FDA-Public Use
  Company Number: US-BAYER-200918130NA

PATIENT
  Age: 81 Year
  Sex: Female
  Weight: 57 kg

DRUGS (6)
  1. AVELOX [Suspect]
     Indication: UPPER RESPIRATORY TRACT INFECTION
     Dosage: TOTAL DAILY DOSE: 400 MG  UNIT DOSE: 400 MG
     Route: 048
     Dates: start: 20090327, end: 20090329
  2. PROVERA [Concomitant]
  3. OGEN [Concomitant]
  4. TIMOLOL MALEATE [Concomitant]
  5. OMEPRAZOLE [Concomitant]
     Indication: GASTROOESOPHAGEAL REFLUX DISEASE
  6. MICARDIS [Concomitant]
     Indication: BLOOD PRESSURE ABNORMAL

REACTIONS (1)
  - DEAFNESS UNILATERAL [None]
